FAERS Safety Report 6471022-4 (Version None)
Quarter: 2009Q4

REPORT INFORMATION
  Report Type: 
  Country: None (occurrence: None)
  Receive Date: 20091203
  Receipt Date: 20080128
  Transmission Date: 20100525
  Serious: Yes (Hospitalization)
  Sender: FDA-Public Use
  Company Number: US-ELI_LILLY_AND_COMPANY-US200801003003

PATIENT
  Sex: Female
  Weight: 63.492 kg

DRUGS (5)
  1. FORTEO [Suspect]
     Dosage: 20 UG, DAILY (1/D)
     Dates: start: 20070301
  2. SYNTHROID [Concomitant]
  3. ALEVE [Concomitant]
     Indication: ARTHRITIS
     Dates: end: 20080101
  4. TRIAMTERENE [Concomitant]
  5. DYAZIDE [Concomitant]

REACTIONS (13)
  - BACK DISORDER [None]
  - BACK PAIN [None]
  - ECCHYMOSIS [None]
  - GAIT DISTURBANCE [None]
  - LYMPHATIC DISORDER [None]
  - NERVOUS SYSTEM DISORDER [None]
  - OSTEOARTHRITIS [None]
  - RESPIRATORY DISORDER [None]
  - ROTATOR CUFF SYNDROME [None]
  - SCIATICA [None]
  - SKIN DISCOLOURATION [None]
  - SPINAL FRACTURE [None]
  - SURGERY [None]
